FAERS Safety Report 9208870 (Version 3)
Quarter: 2013Q3

REPORT INFORMATION
  Report Type: Spontaneous
  Country: JP (occurrence: JP)
  Receive Date: 20130404
  Receipt Date: 20130712
  Transmission Date: 20140515
  Serious: Yes (Other)
  Sender: FDA-Public Use
  Company Number: JP-JNJFOC-20130400016

PATIENT
  Age: 88 Year
  Sex: Female

DRUGS (1)
  1. TRAMCET [Suspect]
     Indication: PAIN
     Route: 048

REACTIONS (4)
  - Hallucination [Unknown]
  - Delusion [Unknown]
  - Delirium [Unknown]
  - Dementia [Unknown]
